FAERS Safety Report 24285948 (Version 1)
Quarter: 2024Q3

REPORT INFORMATION
  Report Type: Spontaneous
  Country: US (occurrence: None)
  Receive Date: 20240904
  Receipt Date: 20240904
  Transmission Date: 20241017
  Serious: Yes (Other)
  Sender: Public
  Company Number: None

PATIENT
  Age: 64 Year
  Sex: Female
  Weight: 81 kg

DRUGS (3)
  1. OCTAGAM IMMUNE GLOBULIN (HUMAN) [Suspect]
     Active Substance: HUMAN IMMUNOGLOBULIN G
     Indication: Multiple sclerosis
     Dosage: 160 G GRAM(S) ONCE, OVER 5 DAYS INTRAVENOUS
     Route: 042
     Dates: start: 20240821
  2. Diphenhydromine 25 mg by mouth [Concomitant]
  3. Acetaminophen 975mg by mouth [Concomitant]

REACTIONS (24)
  - Peripheral swelling [None]
  - Vascular occlusion [None]
  - Inflammation [None]
  - Dysstasia [None]
  - Monoplegia [None]
  - Constipation [None]
  - Dyslipidaemia [None]
  - Headache [None]
  - Immobile [None]
  - Tremor [None]
  - Hypertonia [None]
  - Pain [None]
  - Micturition urgency [None]
  - Slow speech [None]
  - Neck pain [None]
  - Muscular weakness [None]
  - Facial paralysis [None]
  - Gait inability [None]
  - Fatigue [None]
  - Irritability [None]
  - Pruritus [None]
  - Nocturia [None]
  - Cyanosis [None]
  - Dysarthria [None]

NARRATIVE: CASE EVENT DATE: 20240819
